FAERS Safety Report 5901947-7 (Version None)
Quarter: 2008Q3

REPORT INFORMATION
  Report Type: 
  Country: None (occurrence: None)
  Receive Date: 20080929
  Receipt Date: 20080530
  Transmission Date: 20090109
  Serious: No
  Sender: FDA-Public Use
  Company Number: US-BRISTOL-MYERS SQUIBB COMPANY-14210892

PATIENT
  Age: 42 Year
  Sex: Male

DRUGS (3)
  1. BUSPAR [Suspect]
  2. LIPITOR [Concomitant]
  3. HUMALOG [Concomitant]

REACTIONS (1)
  - DIZZINESS [None]
